FAERS Safety Report 9632914 (Version 2)
Quarter: 2013Q4

REPORT INFORMATION
  Report Type: Spontaneous
  Country: CA (occurrence: CA)
  Receive Date: 20131018
  Receipt Date: 20131018
  Transmission Date: 20140711
  Serious: Yes (Other)
  Sender: FDA-Public Use
  Company Number: CA-ABBVIE-13P-028-1042353-00

PATIENT
  Age: 37 Year
  Sex: Female

DRUGS (3)
  1. HUMIRA [Suspect]
     Indication: ANKYLOSING SPONDYLITIS
     Route: 058
     Dates: start: 20120210
  2. REMICADE [Suspect]
     Indication: PRODUCT USED FOR UNKNOWN INDICATION
     Dosage: POWDER FOR SOLUTION FOR INJECTION
     Route: 042
     Dates: start: 20120212
  3. REMICADE [Suspect]
     Route: 042

REACTIONS (7)
  - Panic attack [Unknown]
  - Anxiety [Unknown]
  - Fatigue [Unknown]
  - Muscle tightness [Unknown]
  - Muscular weakness [Unknown]
  - Oedema peripheral [Recovered/Resolved]
  - Swelling face [Recovered/Resolved]
